FAERS Safety Report 9970606 (Version 1)
Quarter: 2014Q1

REPORT INFORMATION
  Report Type: Report from Study
  Country: US (occurrence: US)
  Receive Date: 20140306
  Receipt Date: 20140306
  Transmission Date: 20141002
  Serious: No
  Sender: FDA-Public Use
  Company Number: US-ABBVIE-13P-163-1147785-00

PATIENT
  Age: 44 Year
  Sex: Female

DRUGS (4)
  1. HUMIRA [Suspect]
     Indication: CROHN^S DISEASE
     Dates: start: 20130830
  2. CELEXA [Concomitant]
     Indication: ANXIETY
     Dosage: 40 MG DAILY
  3. MULTIVITAMIN [Concomitant]
     Indication: PRODUCT USED FOR UNKNOWN INDICATION
  4. PREDNISONE [Concomitant]
     Dosage: 5 MG (WEANING), DOWN FROM 10 MG ^LAST SAT^

REACTIONS (4)
  - Sinus congestion [Not Recovered/Not Resolved]
  - Sinus headache [Not Recovered/Not Resolved]
  - Dysphonia [Not Recovered/Not Resolved]
  - Nasopharyngitis [Not Recovered/Not Resolved]
